FAERS Safety Report 15274711 (Version 2)
Quarter: 2018Q3

REPORT INFORMATION
  Report Type: Report from Study
  Country: US (occurrence: US)
  Receive Date: 20180814
  Receipt Date: 20180823
  Transmission Date: 20181010
  Serious: Yes (Hospitalization)
  Sender: FDA-Public Use
  Company Number: US-EMD SERONO-E2B_90054672

PATIENT
  Age: 58 Year
  Sex: Female
  Weight: 92 kg

DRUGS (1)
  1. REBIF [Suspect]
     Active Substance: INTERFERON BETA-1A
     Indication: MULTIPLE SCLEROSIS
     Route: 058
     Dates: start: 20151116

REACTIONS (6)
  - Micturition urgency [Recovering/Resolving]
  - Urinary incontinence [Recovering/Resolving]
  - Pollakiuria [Recovering/Resolving]
  - Speech disorder [Unknown]
  - Thyroid mass [Not Recovered/Not Resolved]
  - Erythema [Recovering/Resolving]

NARRATIVE: CASE EVENT DATE: 201511
